FAERS Safety Report 7790354-0 (Version None)
Quarter: 2011Q3

REPORT INFORMATION
  Report Type: 
  Country: None (occurrence: None)
  Receive Date: 20110930
  Receipt Date: 20110922
  Transmission Date: 20111222
  Serious: Yes (Hospitalization)
  Sender: FDA-Public Use
  Company Number: CA-ELI_LILLY_AND_COMPANY-CA201109006593

PATIENT
  Sex: Female

DRUGS (1)
  1. ADCIRCA [Suspect]

REACTIONS (1)
  - HOSPITALISATION [None]
